FAERS Safety Report 4931181-9 (Version None)
Quarter: 2006Q1

REPORT INFORMATION
  Report Type: 
  Country: None (occurrence: None)
  Receive Date: 20060227
  Receipt Date: 20060214
  Transmission Date: 20060701
  Serious: Yes (Other)
  Sender: FDA-Public Use
  Company Number: 2006021514

PATIENT
  Sex: Male

DRUGS (1)
  1. SINUTAB NON-DROWSY (PARACETAMOL, PSUEUDOEPHEDRINE) [Suspect]
     Indication: NASAL CONGESTION
     Dosage: ORAL
     Route: 048

REACTIONS (5)
  - CHEST DISCOMFORT [None]
  - CONVULSION [None]
  - INFLAMMATION [None]
  - SPINAL DISORDER [None]
  - VOMITING [None]
